FAERS Safety Report 8614113-1 (Version None)
Quarter: 2012Q3

REPORT INFORMATION
  Report Type: 
  Country: None (occurrence: None)
  Receive Date: 20120823
  Receipt Date: 20120815
  Transmission Date: 20120928
  Serious: Yes (Hospitalization)
  Sender: FDA-Public Use
  Company Number: US-BAYER-2012-036007

PATIENT
  Age: 24 Year
  Sex: Female
  Weight: 49.887 kg

DRUGS (8)
  1. YAZ [Suspect]
     Indication: MENSTRUATION IRREGULAR
     Dosage: UNK
     Dates: start: 20091207, end: 20100201
  2. YAZ [Suspect]
     Indication: ACNE
     Dosage: UNK
     Dates: start: 20090429, end: 20091001
  3. VITAMIN B-12 [Concomitant]
     Indication: FATIGUE
     Dosage: UNK
     Dates: start: 20100309
  4. CIPROFLOXACIN [Concomitant]
     Indication: URINARY TRACT INFECTION
     Dosage: 500 MG, BID
     Dates: start: 20100428
  5. MAGNESIUM CITRATE [Concomitant]
     Dosage: UNK
     Dates: start: 20100505
  6. NEXIUM [Concomitant]
  7. FLUCONAZOLE [Concomitant]
     Dosage: 150 MG, UNK
     Dates: start: 20100428
  8. MAGNESIUM HYDROXIDE TAB [Concomitant]

REACTIONS (10)
  - DIARRHOEA [None]
  - ABDOMINAL PAIN UPPER [None]
  - CHOLELITHIASIS [None]
  - VOMITING [None]
  - PAIN [None]
  - NAUSEA [None]
  - INJURY [None]
  - CHOLECYSTITIS CHRONIC [None]
  - CHILLS [None]
  - PYREXIA [None]
